FAERS Safety Report 23814135 (Version 2)
Quarter: 2024Q2

REPORT INFORMATION
  Report Type: Spontaneous
  Country: US (occurrence: US)
  Receive Date: 20240503
  Receipt Date: 20240523
  Transmission Date: 20240715
  Serious: Yes (Other)
  Sender: FDA-Public Use
  Company Number: US-ULTRAGENYX PHARMACEUTICAL INC.-US-UGX-24-00773

PATIENT
  Sex: Male

DRUGS (4)
  1. DOJOLVI [Suspect]
     Active Substance: TRIHEPTANOIN
     Indication: Pyruvate carboxylase deficiency
     Dosage: UNK
  2. DOJOLVI [Suspect]
     Active Substance: TRIHEPTANOIN
     Dosage: 25% OF DAILY CALORIC INTAKE (DCI), Q3H
  3. DOJOLVI [Suspect]
     Active Substance: TRIHEPTANOIN
     Dosage: 15% OF DAILY CALORIC INTAKE (DCI), Q3H
  4. DOJOLVI [Suspect]
     Active Substance: TRIHEPTANOIN
     Dosage: 30% OF DAILY CALORIC INTAKE (DCI), Q3H

REACTIONS (7)
  - Epilepsy [Unknown]
  - Developmental delay [Unknown]
  - Metabolic disorder [Unknown]
  - Hypoglycaemia neonatal [Recovered/Resolved]
  - Gastrointestinal disorder [Unknown]
  - Drug effect less than expected [Unknown]
  - Off label use [Unknown]
